FAERS Safety Report 11157634 (Version 1)
Quarter: 2015Q2

REPORT INFORMATION
  Report Type: Report from Study
  Country: IE (occurrence: None)
  Receive Date: 20150601
  Receipt Date: 20150601
  Transmission Date: 20150821
  Serious: Yes (Hospitalization)
  Sender: FDA-Public Use
  Company Number: 2015FE01675

PATIENT
  Age: 70 Year
  Sex: Male

DRUGS (11)
  1. TAMULOSIN (TAMSULOSIN HYDROCHLORIDE) [Concomitant]
  2. ASPIRIN/ 00002701/ (ACETYLSALICYLIC ACID) [Concomitant]
  3. ATORVASTATIN [Concomitant]
     Active Substance: ATORVASTATIN
  4. RAMIPRIL. [Concomitant]
     Active Substance: RAMIPRIL
  5. CALTRATE /00944201/ (CALCIUM CARBONATE, COLECALCIFEROL) [Concomitant]
  6. BISOP (BISOPROLOL FUMARATE) [Concomitant]
  7. IMODIUM [Concomitant]
     Active Substance: LOPERAMIDE HYDROCHLORIDE
  8. PANTOPRAZOLE [Concomitant]
     Active Substance: PANTOPRAZOLE SODIUM
  9. OMNEXEL (TAMSULOSIN HYDROCHLORIDE) [Concomitant]
  10. DEGARELIX (DEGARELIX) POWDER AND SOLVENT FOR SOLUTION FOR INJECTION [Suspect]
     Active Substance: DEGARELIX
     Indication: PROSTATE CANCER
     Dosage: 240 MG, ONCE/SINGLE
     Route: 058
     Dates: start: 20121113, end: 20121113
  11. DECAPEPTYL /00486501/ (GONADORELIN) [Concomitant]

REACTIONS (1)
  - Arthritis [None]

NARRATIVE: CASE EVENT DATE: 20141011
